FAERS Safety Report 9221494 (Version 1)
Quarter: 2013Q2

REPORT INFORMATION
  Report Type: Spontaneous
  Country: GB (occurrence: None)
  Receive Date: 20130408
  Receipt Date: 20130408
  Transmission Date: 20140414
  Serious: Yes (Other)
  Sender: FDA-Public Use
  Company Number: 2013AP004020

PATIENT
  Age: 59 Year
  Sex: Female

DRUGS (1)
  1. ALENDRONATE (ALENDRONATE SODIUM) [Suspect]
     Indication: OSTEOPOROSIS
     Route: 048
     Dates: start: 20111101, end: 20130315

REACTIONS (2)
  - Atrial fibrillation [None]
  - Palpitations [None]
